FAERS Safety Report 18498210 (Version 3)
Quarter: 2020Q4

REPORT INFORMATION
  Report Type: Spontaneous
  Country: US (occurrence: US)
  Receive Date: 20201112
  Receipt Date: 20201126
  Transmission Date: 20210114
  Serious: Yes (Other)
  Sender: FDA-Public Use
  Company Number: US-PFIZER INC-2020444577

PATIENT
  Age: 72 Year
  Sex: Male
  Weight: 83 kg

DRUGS (3)
  1. METOCLOPRAMIDE HCL [Suspect]
     Active Substance: METOCLOPRAMIDE HYDROCHLORIDE
     Indication: SYMPTOMATIC TREATMENT
     Dosage: 5 MG, Q6H
     Route: 042
  2. ONDANSETRON [Concomitant]
     Active Substance: ONDANSETRON
     Indication: SYMPTOMATIC TREATMENT
     Dosage: UNK
  3. ERYTHROMYCIN. [Concomitant]
     Active Substance: ERYTHROMYCIN
     Indication: SYMPTOMATIC TREATMENT
     Dosage: 300 MG EVERY 8 H

REACTIONS (2)
  - Electrocardiogram QT prolonged [Unknown]
  - Tachycardia [Unknown]
